FAERS Safety Report 6781318-4 (Version None)
Quarter: 2010Q2

REPORT INFORMATION
  Report Type: 
  Country: None (occurrence: None)
  Receive Date: 20100621
  Receipt Date: 20100609
  Transmission Date: 20101027
  Serious: Yes (Other)
  Sender: FDA-Public Use
  Company Number: PHHY2009US47572

PATIENT
  Age: 70 Year
  Sex: Female

DRUGS (1)
  1. ESTRADERM [Suspect]
     Dosage: UNK
     Dates: start: 19830101

REACTIONS (6)
  - ABDOMINAL PAIN [None]
  - ENDOMETRIAL SARCOMA [None]
  - ENDOMETRIOSIS [None]
  - EXPLORATIVE LAPAROTOMY [None]
  - HYDRONEPHROSIS [None]
  - POLLAKIURIA [None]
